FAERS Safety Report 6841831-8 (Version None)
Quarter: 2010Q3

REPORT INFORMATION
  Report Type: 
  Country: None (occurrence: None)
  Receive Date: 20100714
  Receipt Date: 20070717
  Transmission Date: 20110219
  Serious: No
  Sender: FDA-Public Use
  Company Number: US-PFIZER INC-2007059954

PATIENT
  Sex: Female

DRUGS (3)
  1. CHANTIX [Suspect]
     Indication: SMOKING CESSATION THERAPY
     Dates: start: 20070101
  2. IBUPROFEN [Concomitant]
     Indication: MIGRAINE
  3. SYNTHROID [Concomitant]
     Indication: THYROID DISORDER

REACTIONS (1)
  - VISION BLURRED [None]
